FAERS Safety Report 5744966-6 (Version None)
Quarter: 2008Q2

REPORT INFORMATION
  Report Type: 
  Country: None (occurrence: None)
  Receive Date: 20080521
  Receipt Date: 20080512
  Transmission Date: 20081010
  Serious: Yes (Other)
  Sender: FDA-Public Use
  Company Number: US-JNJFOC-20080503108

PATIENT
  Sex: Female
  Weight: 104.33 kg

DRUGS (7)
  1. FENTANYL TRANSDERMAL SYSTEM [Suspect]
     Indication: FIBROMYALGIA
     Route: 062
  2. FENTANYL TRANSDERMAL SYSTEM [Suspect]
     Indication: INTERVERTEBRAL DISC PROTRUSION
     Route: 062
  3. FENTANYL TRANSDERMAL SYSTEM [Suspect]
     Indication: FIBROMYALGIA
     Route: 062
  4. FENTANYL TRANSDERMAL SYSTEM [Suspect]
     Indication: INTERVERTEBRAL DISC PROTRUSION
     Route: 062
  5. CLONAZEPAM [Concomitant]
     Indication: ANXIETY
     Route: 048
  6. ZANAFLEX [Concomitant]
     Indication: MUSCLE RELAXANT THERAPY
     Route: 048
  7. LEXAPRO [Concomitant]
     Indication: ANXIETY
     Route: 048

REACTIONS (8)
  - BLOOD CHOLESTEROL INCREASED [None]
  - DISORIENTATION [None]
  - FOAMING AT MOUTH [None]
  - GAIT DISTURBANCE [None]
  - HYPERHIDROSIS [None]
  - HYPOAESTHESIA [None]
  - JOINT SPRAIN [None]
  - UNRESPONSIVE TO STIMULI [None]
